FAERS Safety Report 12599224 (Version 1)
Quarter: 2016Q3

REPORT INFORMATION
  Report Type: Spontaneous
  Country: US (occurrence: US)
  Receive Date: 20160727
  Receipt Date: 20160727
  Transmission Date: 20161109
  Serious: No
  Sender: FDA-Public Use
  Company Number: US-PFIZER INC-2016342287

PATIENT
  Age: 66 Year
  Sex: Female
  Weight: 58.97 kg

DRUGS (3)
  1. LETROZOLE. [Concomitant]
     Active Substance: LETROZOLE
     Indication: ENDOCRINE DISORDER
     Dosage: 2.5 MG, DAILY (2.5MG ONE A DAY TABLET )
     Dates: start: 201602
  2. LOSARTAN. [Concomitant]
     Active Substance: LOSARTAN
     Indication: HYPERTENSION
     Dosage: 100 MG, 1X/DAY (100MG ONCE A DAY TABLET)
     Dates: start: 2013
  3. IBRANCE [Suspect]
     Active Substance: PALBOCICLIB
     Indication: BREAST CANCER
     Dosage: 125 MG, CYCLIC (125MG CAPSULE ONCE A DAY BY MOUTH FOR THREE WEEKS ON AND ONE WEEK OFF)
     Route: 048
     Dates: start: 201602, end: 201606

REACTIONS (1)
  - Neutrophil count decreased [Recovered/Resolved]

NARRATIVE: CASE EVENT DATE: 20160614
